FAERS Safety Report 4571466-1 (Version None)
Quarter: 2005Q1

REPORT INFORMATION
  Report Type: 
  Country: None (occurrence: None)
  Receive Date: 20050118
  Receipt Date: 20040618
  Transmission Date: 20050727
  Serious: Yes (Hospitalization)
  Sender: FDA-Public Use
  Company Number: HQ4114609SEP2002

PATIENT
  Age: 59 Year
  Sex: Female

DRUGS (1)
  1. PREMPRO [Suspect]
     Dosage: UNSPECIFIED DOSE DAILY, ORAL
     Route: 048
     Dates: start: 19950101, end: 20020601

REACTIONS (1)
  - BREAST CANCER FEMALE [None]
